FAERS Safety Report 13194173 (Version 3)
Quarter: 2018Q1

REPORT INFORMATION
  Report Type: Spontaneous
  Country: IE (occurrence: IE)
  Receive Date: 20170207
  Receipt Date: 20180131
  Transmission Date: 20180508
  Serious: Yes (Other)
  Sender: FDA-Public Use
  Company Number: IE-MYLANLABS-2017M1005297

PATIENT
  Age: 41 Year
  Sex: Male

DRUGS (1)
  1. CLOZARIL [Suspect]
     Active Substance: CLOZAPINE
     Indication: SCHIZOPHRENIA
     Dosage: UNK
     Route: 048
     Dates: start: 20161103

REACTIONS (4)
  - Cough [Unknown]
  - Infection [Unknown]
  - Agranulocytosis [Recovered/Resolved]
  - Platelet count decreased [Unknown]

NARRATIVE: CASE EVENT DATE: 20170125
